FAERS Safety Report 23788431 (Version 2)
Quarter: 2024Q2

REPORT INFORMATION
  Report Type: Spontaneous
  Country: US (occurrence: US)
  Receive Date: 20240426
  Receipt Date: 20240430
  Transmission Date: 20240716
  Serious: No
  Sender: FDA-Public Use
  Company Number: US-002147023-NVSC2024US088188

PATIENT
  Sex: Male
  Weight: 93.44 kg

DRUGS (1)
  1. MEKINIST [Suspect]
     Active Substance: TRAMETINIB DIMETHYL SULFOXIDE
     Indication: Arteriovenous malformation
     Dosage: 1.5 MG, QD
     Route: 048

REACTIONS (1)
  - Feeling hot [Unknown]
